FAERS Safety Report 9196578 (Version 2)
Quarter: 2013Q2

REPORT INFORMATION
  Report Type: Spontaneous
  Country: BR (occurrence: BR)
  Receive Date: 20130328
  Receipt Date: 20130530
  Transmission Date: 20140414
  Serious: Yes (Death, Other)
  Sender: FDA-Public Use
  Company Number: BR-PFIZER INC-2013095814

PATIENT
  Age: 51 Year
  Sex: Female

DRUGS (4)
  1. SUTENT [Suspect]
     Indication: RENAL CELL CARCINOMA
     Dosage: 50 MG, 1X/DAY (CYCLE 4 TO 2)
     Route: 048
     Dates: start: 20121106
  2. MORPHINE [Concomitant]
     Dosage: STRENGTH 30 MG AND 60 MG
  3. METAMIZOLE [Concomitant]
  4. OMEPRAZOLE [Concomitant]

REACTIONS (12)
  - Death [Fatal]
  - Tumour pain [Unknown]
  - Second primary malignancy [Unknown]
  - Bone cancer [Unknown]
  - Urinary tract infection [Unknown]
  - Hypokinesia [Unknown]
  - General physical condition abnormal [Unknown]
  - Eschar [Unknown]
  - Wound complication [Unknown]
  - Wound complication [Unknown]
  - Vulvovaginal swelling [Unknown]
  - Oedema peripheral [Unknown]
